FAERS Safety Report 5320903-3 (Version None)
Quarter: 2007Q2

REPORT INFORMATION
  Report Type: 
  Country: None (occurrence: None)
  Receive Date: 20070504
  Receipt Date: 20070423
  Transmission Date: 20071010
  Serious: Yes (Hospitalization)
  Sender: FDA-Public Use
  Company Number: RENA-12110

PATIENT
  Age: 42 Year
  Sex: Female
  Weight: 51.7 kg

DRUGS (7)
  1. RENAGEL [Suspect]
     Indication: HYPERPHOSPHATAEMIA
     Dosage: 0.25 G TID PO
     Route: 048
     Dates: start: 20060419, end: 20060503
  2. RENAGEL [Suspect]
     Indication: HYPERPHOSPHATAEMIA
     Dates: start: 20061206
  3. ALFAROL [Concomitant]
  4. HARNAL [Concomitant]
  5. NORVASC [Concomitant]
  6. LASIX [Concomitant]
  7. CALTAN (PRECIPITATED CALCIUM CARBONATE) [Concomitant]

REACTIONS (7)
  - ABDOMINAL DISTENSION [None]
  - ABDOMINAL PAIN [None]
  - DIARRHOEA [None]
  - EROSIVE DUODENITIS [None]
  - GASTRITIS EROSIVE [None]
  - HAEMORRHAGE [None]
  - MELAENA [None]
